FAERS Safety Report 5661840-4 (Version None)
Quarter: 2008Q1

REPORT INFORMATION
  Report Type: 
  Country: None (occurrence: None)
  Receive Date: 20080312
  Receipt Date: 20080305
  Transmission Date: 20080703
  Serious: Yes (Other)
  Sender: FDA-Public Use
  Company Number: US-ASTRAZENECA-2008UW04877

PATIENT
  Age: 42 Year
  Sex: Female

DRUGS (1)
  1. TAMOXIFEN [Suspect]
     Route: 048

REACTIONS (1)
  - THROMBOSIS [None]
